FAERS Safety Report 4341976-0 (Version None)
Quarter: 2004Q2

REPORT INFORMATION
  Report Type: 
  Country: None (occurrence: None)
  Receive Date: 20040415
  Receipt Date: 20040223
  Transmission Date: 20050107
  Serious: Yes (Other)
  Sender: FDA-Public Use
  Company Number: US_0402101055

PATIENT
  Sex: Male
  Weight: 95 kg

DRUGS (3)
  1. HUMALOG [Suspect]
     Indication: DIABETES MELLITUS
     Dates: start: 19940101
  2. HUMULIN N [Suspect]
     Indication: DIABETES MELLITUS
     Dates: start: 19940101
  3. HUMULIN R [Suspect]
     Indication: DIABETES MELLITUS

REACTIONS (5)
  - BLINDNESS UNILATERAL [None]
  - EYE HAEMORRHAGE [None]
  - GLAUCOMA [None]
  - PHARMACEUTICAL PRODUCT COMPLAINT [None]
  - VISUAL ACUITY REDUCED [None]
